FAERS Safety Report 7562563-7 (Version None)
Quarter: 2011Q2

REPORT INFORMATION
  Report Type: 
  Country: None (occurrence: None)
  Receive Date: 20110622
  Receipt Date: 20110606
  Transmission Date: 20111010
  Serious: Yes (Other)
  Sender: FDA-Public Use
  Company Number: DK-JNJFOC-20110600503

PATIENT
  Sex: Female

DRUGS (1)
  1. SIMPONI [Suspect]
     Indication: PSORIATIC ARTHROPATHY
     Route: 058
     Dates: start: 20110506

REACTIONS (5)
  - HYPERSENSITIVITY [None]
  - RASH [None]
  - DYSPNOEA [None]
  - CHEST DISCOMFORT [None]
  - THROAT TIGHTNESS [None]
